FAERS Safety Report 10757915 (Version 1)
Quarter: 2015Q1

REPORT INFORMATION
  Report Type: Spontaneous
  Country: US (occurrence: None)
  Receive Date: 20150202
  Receipt Date: 20150202
  Transmission Date: 20150721
  Serious: Yes (Hospitalization)
  Sender: FDA-Public Use
  Company Number: None

PATIENT
  Age: 50 Year
  Sex: Male
  Weight: 45.73 kg

DRUGS (2)
  1. CISPLATIN. [Suspect]
     Active Substance: CISPLATIN
     Dates: end: 20150107
  2. GEMCITABINE HYDROCHLORIDE. [Suspect]
     Active Substance: GEMCITABINE HYDROCHLORIDE
     Dates: end: 20150107

REACTIONS (17)
  - Pain [None]
  - Anxiety [None]
  - Vulvovaginal pain [None]
  - Dehydration [None]
  - Urogenital disorder [None]
  - Toxicity to various agents [None]
  - Blood albumin abnormal [None]
  - Weight decreased [None]
  - Vomiting [None]
  - White blood cell count decreased [None]
  - Constipation [None]
  - Blood pressure increased [None]
  - Breakthrough pain [None]
  - Nausea [None]
  - Anaemia [None]
  - Perineal pain [None]
  - Skin reaction [None]

NARRATIVE: CASE EVENT DATE: 20150109
